FAERS Safety Report 24384369 (Version 3)
Quarter: 2024Q4

REPORT INFORMATION
  Report Type: Spontaneous
  Country: FR (occurrence: FR)
  Receive Date: 20241001
  Receipt Date: 20241025
  Transmission Date: 20250115
  Serious: Yes (Other)
  Sender: INCYTE
  Company Number: FR-INCYTE CORPORATION-2024IN010193

PATIENT

DRUGS (1)
  1. OPZELURA [Suspect]
     Active Substance: RUXOLITINIB PHOSPHATE
     Indication: Vitiligo
     Dosage: BID, APPLY THIN LAYER AM AND PM TO DEPIGMENTED AREAS OF THE SKIN UP TO 10% OF BSA (MIN INTERVAL Q8H)
     Route: 061
     Dates: start: 20240730, end: 202408

REACTIONS (1)
  - Squamous cell carcinoma of skin [Not Recovered/Not Resolved]

NARRATIVE: CASE EVENT DATE: 20240801
